FAERS Safety Report 7309411-8 (Version None)
Quarter: 2011Q1

REPORT INFORMATION
  Report Type: 
  Country: None (occurrence: None)
  Receive Date: 20110211
  Receipt Date: 20110207
  Transmission Date: 20110831
  Serious: Yes (Hospitalization)
  Sender: FDA-Public Use
  Company Number: SP03483

PATIENT

DRUGS (10)
  1. GLIMEPIRIDE [Concomitant]
  2. TRAMADOL HCL [Concomitant]
  3. MAGNESIUM OXIDE [Concomitant]
  4. TORSEMIDE [Concomitant]
  5. PANTOPRAZOLE [Concomitant]
  6. POTASSIUM [Concomitant]
  7. XIFAXAN [Suspect]
     Indication: HEPATIC ENCEPHALOPATHY
     Dosage: 550 MG (550 MG, 2 IN 1 D), ORAL
     Route: 048
     Dates: start: 20100801
  8. SPIRONOLACTONE [Concomitant]
  9. CRYSTALLOSE [Concomitant]
  10. INSULIN SLIDING SCALE [Concomitant]

REACTIONS (5)
  - PAIN IN EXTREMITY [None]
  - CHEST PAIN [None]
  - PRURITUS [None]
  - MUSCLE SPASMS [None]
  - DYSKINESIA [None]
